FAERS Safety Report 9452795 (Version 1)
Quarter: 2013Q3

REPORT INFORMATION
  Report Type: Spontaneous
  Country: JP (occurrence: JP)
  Receive Date: 20130812
  Receipt Date: 20130812
  Transmission Date: 20140515
  Serious: Yes (Other)
  Sender: FDA-Public Use
  Company Number: PHHY2013JP085706

PATIENT
  Sex: Female

DRUGS (1)
  1. DIOVAN [Suspect]
     Route: 048

REACTIONS (6)
  - Aneurysm [Unknown]
  - Arrhythmia [Unknown]
  - Poor peripheral circulation [Unknown]
  - Peripheral coldness [Unknown]
  - Pruritus [Unknown]
  - Oedema [Unknown]
